FAERS Safety Report 17905242 (Version 2)
Quarter: 2023Q1

REPORT INFORMATION
  Report Type: Report from Study
  Country: US (occurrence: US)
  Receive Date: 20200616
  Receipt Date: 20230303
  Transmission Date: 20230418
  Serious: No
  Sender: FDA-Public Use
  Company Number: US-JAZZ-2020-US-007347

PATIENT
  Age: 36 Year
  Sex: Female

DRUGS (17)
  1. XYREM [Suspect]
     Active Substance: SODIUM OXYBATE
     Indication: Narcolepsy
     Dosage: 2.25 GRAM, BID
     Route: 048
     Dates: start: 200904, end: 200904
  2. XYREM [Suspect]
     Active Substance: SODIUM OXYBATE
     Indication: Cataplexy
     Dosage: DOSE ADJUSTMENT
     Route: 048
     Dates: start: 200904, end: 200910
  3. XYREM [Suspect]
     Active Substance: SODIUM OXYBATE
     Indication: Somnolence
     Dosage: 4.5 GRAM, BID
     Route: 048
     Dates: start: 200910
  4. CHANTIX [Suspect]
     Active Substance: VARENICLINE TARTRATE
     Indication: Product used for unknown indication
     Dosage: UNK
     Dates: start: 20010101, end: 20100101
  5. ERGOCALCIFEROL [Concomitant]
     Active Substance: ERGOCALCIFEROL
  6. ABILIFY [Concomitant]
     Active Substance: ARIPIPRAZOLE
  7. CITALOPRAM [Concomitant]
     Active Substance: CITALOPRAM HYDROBROMIDE
  8. COPAXONE [Concomitant]
     Active Substance: GLATIRAMER ACETATE
  9. DEXEDRINE [Concomitant]
     Active Substance: DEXTROAMPHETAMINE SULFATE
  10. GILENYA [Concomitant]
     Active Substance: FINGOLIMOD HYDROCHLORIDE
  11. LEXAPRO [Concomitant]
     Active Substance: ESCITALOPRAM OXALATE
  12. PAXIL [Concomitant]
     Active Substance: PAROXETINE HYDROCHLORIDE
  13. PROVIGIL [Concomitant]
     Active Substance: MODAFINIL
  14. SINGULAIR [Concomitant]
     Active Substance: MONTELUKAST SODIUM
  15. VERAMYST [Concomitant]
     Active Substance: FLUTICASONE FUROATE
  16. LORATADINE [Concomitant]
     Active Substance: LORATADINE
  17. ALCOHOL [Concomitant]
     Active Substance: ALCOHOL
     Dosage: UNK
     Dates: start: 20151204

REACTIONS (9)
  - Dental caries [Recovering/Resolving]
  - Asthma [Unknown]
  - Onychoclasis [Recovering/Resolving]
  - Trichorrhexis [Not Recovered/Not Resolved]
  - Skin disorder [Not Recovered/Not Resolved]
  - Illness [Unknown]
  - Gingival disorder [Unknown]
  - Hallucination, tactile [Recovering/Resolving]
  - Memory impairment [Unknown]

NARRATIVE: CASE EVENT DATE: 20150101
